FAERS Safety Report 13711071 (Version 1)
Quarter: 2017Q3

REPORT INFORMATION
  Report Type: Spontaneous
  Country: US (occurrence: US)
  Receive Date: 20170701
  Receipt Date: 20170701
  Transmission Date: 20171127
  Serious: Yes (Other)
  Sender: FDA-Public Use
  Company Number: None

PATIENT
  Age: 31 Year
  Sex: Female
  Weight: 90 kg

DRUGS (4)
  1. VIIBRYD [Concomitant]
     Active Substance: VILAZODONE HYDROCHLORIDE
  2. SINTHROID [Concomitant]
  3. DEXTROAMPHET SACCHARAT, AMPHET ASPARTATE, DEXTROAMPHET SULFATE AND AMPHET SULFAT [Suspect]
     Active Substance: AMPHETAMINE ASPARTATE\AMPHETAMINE SULFATE\DEXTROAMPHETAMINE SACCHARATE\DEXTROAMPHETAMINE SULFATE
     Indication: ATTENTION DEFICIT/HYPERACTIVITY DISORDER
     Dosage: ?          OTHER STRENGTH:MG;QUANTITY:60 TABLET(S);?
     Route: 048
     Dates: start: 20170627, end: 20170701
  4. ADDERALL [Concomitant]
     Active Substance: AMPHETAMINE ASPARTATE\AMPHETAMINE SULFATE\DEXTROAMPHETAMINE SACCHARATE\DEXTROAMPHETAMINE SULFATE

REACTIONS (3)
  - Confusional state [None]
  - Hypersomnia [None]
  - Dizziness [None]

NARRATIVE: CASE EVENT DATE: 20170627
